FAERS Safety Report 6651614-X (Version None)
Quarter: 2010Q1

REPORT INFORMATION
  Report Type: 
  Country: None (occurrence: None)
  Receive Date: 20100325
  Receipt Date: 20100317
  Transmission Date: 20100710
  Serious: Yes (Other)
  Sender: FDA-Public Use
  Company Number: US-WYE-H14183110

PATIENT
  Age: 63 Year
  Sex: Female
  Weight: 78.54 kg

DRUGS (2)
  1. ROBITUSSIN COUGH AND CHEST CONGESTION DM MAX [Suspect]
     Indication: SINUS CONGESTION
     Dosage: 2 TSP EVERY 1 DAY;  CUMULATIVE DOSE TO EVENT: 2 TSP
     Route: 048
     Dates: start: 20100307, end: 20100307
  2. ACETYLSALICYLIC ACID [Concomitant]
     Indication: PAIN
     Dosage: UNKNOWN, AS NEEDED
     Route: 048

REACTIONS (3)
  - BLOOD GLUCOSE INCREASED [None]
  - BLOOD PRESSURE INCREASED [None]
  - CEREBROVASCULAR ACCIDENT [None]
